FAERS Safety Report 8596014-0 (Version None)
Quarter: 2012Q3

REPORT INFORMATION
  Report Type: 
  Country: None (occurrence: None)
  Receive Date: 20120815
  Receipt Date: 19891024
  Transmission Date: 20120928
  Serious: Yes (Other)
  Sender: FDA-Public Use
  Company Number: US-ROCHE-1100959

PATIENT
  Age: 47 Year
  Sex: Male

DRUGS (3)
  1. ACTIVASE [Suspect]
     Indication: ACUTE MYOCARDIAL INFARCTION
  2. TRIDIL [Concomitant]
  3. LIDOCAINE BOLUS [Concomitant]

REACTIONS (2)
  - PANIC ATTACK [None]
  - CHEST DISCOMFORT [None]
